FAERS Safety Report 6920735-6 (Version None)
Quarter: 2010Q3

REPORT INFORMATION
  Report Type: 
  Country: None (occurrence: None)
  Receive Date: 20100812
  Receipt Date: 20100803
  Transmission Date: 20110219
  Serious: Yes (Other)
  Sender: FDA-Public Use
  Company Number: US-NAPPMUNDI-USA-2010-0045459

PATIENT
  Sex: Female

DRUGS (1)
  1. PERI-COLACE [Suspect]
     Indication: CONSTIPATION
     Dosage: 1 TABLET, SINGLE
     Dates: start: 20100801, end: 20100801

REACTIONS (1)
  - RESPIRATORY DISTRESS [None]
